FAERS Safety Report 6179352-0 (Version None)
Quarter: 2009Q2

REPORT INFORMATION
  Report Type: 
  Country: None (occurrence: None)
  Receive Date: 20090501
  Receipt Date: 20090501
  Transmission Date: 20091009
  Serious: No
  Sender: FDA-Public Use
  Company Number: None

PATIENT
  Sex: Female
  Weight: 48.1 kg

DRUGS (2)
  1. LAMICTAL [Suspect]
  2. KEPPRA [Suspect]

REACTIONS (1)
  - ELECTROENCEPHALOGRAM ABNORMAL [None]
